FAERS Safety Report 4433647-7 (Version None)
Quarter: 2004Q3

REPORT INFORMATION
  Report Type: 
  Country: None (occurrence: None)
  Receive Date: 20040824
  Receipt Date: 20040818
  Transmission Date: 20050211
  Serious: Yes (Life-Threatening, Hospitalization)
  Sender: FDA-Public Use
  Company Number: TCI2003A03824

PATIENT
  Age: 56 Year
  Sex: Male

DRUGS (22)
  1. ACTOS [Suspect]
     Indication: DIABETES MELLITUS NON-INSULIN-DEPENDENT
     Dosage: 30 MG (30 MG, 1 D)
     Route: 048
     Dates: start: 20030318, end: 20030802
  2. ACTOS [Suspect]
     Indication: DIABETES MELLITUS NON-INSULIN-DEPENDENT
     Dosage: 30 MG (30 MG, 1 D)
     Route: 048
     Dates: start: 20030930, end: 20040313
  3. BASEN (VOGLIBOSE) [Suspect]
     Indication: DIABETES MELLITUS NON-INSULIN-DEPENDENT
     Dosage: 0.9 MG (0.9 MG, 1 D)
     Route: 048
     Dates: start: 20030930, end: 20031226
  4. BLOPRESS (CANDESARTAN CILEXETIL) [Concomitant]
  5. GLIBENCLAMIDE [Concomitant]
  6. CIBENZOLINE SUCCINATE [Concomitant]
  7. BENIDIPINE HYDROCHLORIDE [Concomitant]
  8. METILDIGOXIN [Concomitant]
  9. ACETYLSALICYLIC ACID [Concomitant]
  10. CIMETIDINE [Concomitant]
  11. DOXAZOSIN MESYLATE [Concomitant]
  12. NICORANDIL [Concomitant]
  13. METFORMIN HCL [Concomitant]
  14. VALSARTAN [Concomitant]
  15. DILTIAZEM HYDROCHLORIDE [Concomitant]
  16. CARVEDILOL [Concomitant]
  17. BUFFERIN [Concomitant]
  18. NIZATIDINE [Concomitant]
  19. PRAZOSIN HYDROCHLORIDE [Concomitant]
  20. EPALRESTAT [Concomitant]
  21. AMLODIPINE BESYLATE [Concomitant]
  22. LOSARTAN POTASSIUM [Concomitant]

REACTIONS (6)
  - ALCOHOLIC LIVER DISEASE [None]
  - DEPRESSED LEVEL OF CONSCIOUSNESS [None]
  - FALL [None]
  - GASTRIC ULCER [None]
  - HAEMOPTYSIS [None]
  - SHOCK HAEMORRHAGIC [None]
